FAERS Safety Report 20148096 (Version 2)
Quarter: 2021Q4

REPORT INFORMATION
  Report Type: Report from Study
  Country: US (occurrence: US)
  Receive Date: 20211204
  Receipt Date: 20211207
  Transmission Date: 20220303
  Serious: No
  Sender: FDA-Public Use
  Company Number: US-NOVARTISTESTPH-NVSC2021US276982

PATIENT
  Sex: Female

DRUGS (2)
  1. ENTRESTO [Suspect]
     Active Substance: SACUBITRIL\VALSARTAN
     Indication: Cardiac failure
     Dosage: 24.26 MG/KG, OTHER
     Route: 048
  2. ENTRESTO [Suspect]
     Active Substance: SACUBITRIL\VALSARTAN
     Dosage: 24.26 MG, BID
     Route: 048
     Dates: start: 2020, end: 2020

REACTIONS (6)
  - Fatigue [Unknown]
  - Arthritis [Unknown]
  - Hypokinesia [Unknown]
  - Seasonal allergy [Unknown]
  - Expired product administered [Not Recovered/Not Resolved]
  - Incorrect dosage administered [Unknown]
